FAERS Safety Report 19742547 (Version 1)
Quarter: 2021Q3

REPORT INFORMATION
  Report Type: Spontaneous
  Country: CA (occurrence: CA)
  Receive Date: 20210824
  Receipt Date: 20210824
  Transmission Date: 20211014
  Serious: Yes (Life-Threatening, Hospitalization)
  Sender: FDA-Public Use
  Company Number: CA-TEVA-2021-CA-1944265

PATIENT
  Age: 7 Year
  Sex: Female

DRUGS (11)
  1. DDROPS [Concomitant]
     Route: 065
  2. MAGNESIUM GLYCINATE [Concomitant]
     Active Substance: MAGNESIUM GLYCINATE
     Route: 065
  3. VITAMIN A [Concomitant]
     Active Substance: VITAMIN A
     Route: 065
  4. GLUTATHIONE [Concomitant]
     Active Substance: GLUTATHIONE
     Route: 065
  5. VITAMIN C [Concomitant]
     Active Substance: ASCORBIC ACID
     Route: 065
  6. AMOXICILLIN/CLAVULANATE POTASSIUM [Suspect]
     Active Substance: AMOXICILLIN\CLAVULANATE POTASSIUM
     Route: 065
  7. S. BOULARDII SAP [Concomitant]
     Route: 065
  8. NUTRIBIOTIC 250 MG [Concomitant]
     Route: 065
  9. SULFAMETHOXAZOLE W/TRIMETHOPRIM [Suspect]
     Active Substance: SULFAMETHOXAZOLE\TRIMETHOPRIM
     Route: 065
  10. BIOFILM BUSTER (BISMUTH SUBNITRATE 200 MG, ALPHALIPOIC ACID 100 MG, ED [Concomitant]
     Route: 065
  11. CRITICAL CARE PROBIOTIC [Concomitant]
     Route: 065

REACTIONS (1)
  - Drug reaction with eosinophilia and systemic symptoms [Unknown]
